FAERS Safety Report 20043825 (Version 1)
Quarter: 2021Q4

REPORT INFORMATION
  Report Type: Report from Study
  Country: BR (occurrence: BR)
  Receive Date: 20211108
  Receipt Date: 20211108
  Transmission Date: 20220303
  Serious: Yes (Other)
  Sender: FDA-Public Use
  Company Number: BR-NOVARTISPH-NVSC2021BR239190

PATIENT
  Sex: Female
  Weight: 67 kg

DRUGS (8)
  1. LUCENTIS [Suspect]
     Active Substance: RANIBIZUMAB
     Indication: Age-related macular degeneration
     Dosage: UNK UNK, QMO (VIAL/AMPOULE, ONE INJECTION QMO (BETWEEN SEP 2019 TO 04 OCT 2021)
     Route: 031
  2. BROLUCIZUMAB [Suspect]
     Active Substance: BROLUCIZUMAB
     Indication: Age-related macular degeneration
     Dosage: VIAL/AMPOULE, ONE INJECTION (IN BOTH EYES)
     Route: 031
     Dates: start: 20211004
  3. CLOPIDOGREL [Suspect]
     Active Substance: CLOPIDOGREL BISULFATE
     Indication: Anticoagulant therapy
     Dosage: 1 DF, QD (STOPPED ABOUT 6 MONTHS AGO)
     Route: 048
     Dates: start: 2009
  4. LOSARTAN [Suspect]
     Active Substance: LOSARTAN
     Indication: Hypertension
     Dosage: 1 DF (MORNING AND NIGHT)
     Route: 048
     Dates: start: 200909
  5. AMLODIPINE [Suspect]
     Active Substance: AMLODIPINE BESYLATE
     Indication: Hypertension
     Dosage: 1 DF, QD (ONE OF 5MG IN THE MORNING)
     Route: 048
     Dates: start: 200909
  6. ATENOLOL [Suspect]
     Active Substance: ATENOLOL
     Indication: Hypertension
     Dosage: 1 DF, BID (OR 1 TABLET OF 100MG QD)
     Route: 048
     Dates: start: 200909
  7. CILOSTAZOL [Concomitant]
     Active Substance: CILOSTAZOL
     Indication: Product used for unknown indication
     Dosage: 1 DF, BID (MORNING AND NIGHT)
     Route: 048
     Dates: start: 2009
  8. ASPIRIN\DIHYDROXYALUMINUM AMINOACETATE ANHYDROUS\MAGNESIUM CARBONATE [Concomitant]
     Active Substance: ASPIRIN\DIHYDROXYALUMINUM AMINOACETATE ANHYDROUS\MAGNESIUM CARBONATE
     Indication: Anticoagulant therapy
     Dosage: 1 DF, BID (MORNING AND NIGHT)
     Route: 048
     Dates: start: 2009

REACTIONS (8)
  - Gastrointestinal infection [Recovered/Resolved]
  - Abdominal pain upper [Recovered/Resolved]
  - Vomiting [Recovered/Resolved]
  - Vision blurred [Unknown]
  - Cataract [Recovered/Resolved]
  - Photopsia [Not Recovered/Not Resolved]
  - Blood pressure abnormal [Not Recovered/Not Resolved]
  - Swelling of eyelid [Not Recovered/Not Resolved]

NARRATIVE: CASE EVENT DATE: 20190101
